FAERS Safety Report 6821713-8 (Version None)
Quarter: 2010Q3

REPORT INFORMATION
  Report Type: 
  Country: None (occurrence: None)
  Receive Date: 20100702
  Receipt Date: 20100602
  Transmission Date: 20110219
  Serious: Yes (Other)
  Sender: FDA-Public Use
  Company Number: WAES1006USA00958

PATIENT
  Age: 50 Year
  Sex: Male

DRUGS (2)
  1. FOSAMAX [Suspect]
     Indication: HYPERCALCAEMIA
     Dosage: IV
     Route: 042
  2. ZOMETA [Suspect]
     Indication: HYPERCALCAEMIA
     Dosage: IV
     Route: 042

REACTIONS (2)
  - OSTEONECROSIS OF JAW [None]
  - TOOTHACHE [None]
